FAERS Safety Report 21881326 (Version 1)
Quarter: 2023Q1

REPORT INFORMATION
  Report Type: Spontaneous
  Country: CO (occurrence: CO)
  Receive Date: 20230119
  Receipt Date: 20230119
  Transmission Date: 20230417
  Serious: Yes (Other)
  Sender: FDA-Public Use
  Company Number: CO-AMGEN-COLSP2022015763

PATIENT
  Age: 50 Year
  Sex: Female
  Weight: 37 kg

DRUGS (11)
  1. MVASI [Suspect]
     Active Substance: BEVACIZUMAB-AWWB
     Indication: Colon cancer metastatic
     Dosage: 100 MILLIGRAM, QD
     Route: 042
     Dates: start: 20211127
  2. LEUCOVORIN CALCIUM [Concomitant]
     Active Substance: LEUCOVORIN CALCIUM
     Indication: Retroperitoneal cancer
     Dosage: 10 MILLIGRAM, QD
     Route: 042
     Dates: start: 20211127
  3. DEXAMETHASONE PHOSPHATE [Concomitant]
     Active Substance: DEXAMETHASONE PHOSPHATE
     Indication: Retroperitoneal cancer
     Dosage: 8 MILLIGRAM, QD
     Route: 042
     Dates: start: 20211127
  4. DEXAMETHASONE PHOSPHATE [Concomitant]
     Active Substance: DEXAMETHASONE PHOSPHATE
     Dosage: 8 MILLIGRAM, QD
     Route: 051
     Dates: start: 20211127
  5. FLUOROURACIL [Concomitant]
     Active Substance: FLUOROURACIL
     Indication: Retroperitoneal cancer
     Dosage: 500 MILLIGRAM, QD
     Route: 042
     Dates: start: 20211127
  6. FOSAPREPITANT [Concomitant]
     Active Substance: FOSAPREPITANT
     Indication: Retroperitoneal cancer
     Dosage: 150 MILLIGRAM, QD
     Route: 042
     Dates: start: 20211127
  7. PALONOSETRON [Concomitant]
     Active Substance: PALONOSETRON
     Indication: Retroperitoneal cancer
     Dosage: 50 MICROGRAM, QD
     Route: 042
     Dates: start: 20211127
  8. PALONOSETRON [Concomitant]
     Active Substance: PALONOSETRON
     Dosage: 0.5 MILLIGRAM/ML, QD
     Route: 042
     Dates: start: 20211127
  9. PREGABALIN [Concomitant]
     Active Substance: PREGABALIN
     Indication: Retroperitoneal cancer
     Dosage: 75 MILLIGRAM, EVERY 12 HOURS FOR 60 DAYS
     Route: 048
     Dates: start: 20211127
  10. IRINOTECAN [Concomitant]
     Active Substance: IRINOTECAN
     Indication: Retroperitoneal cancer
     Dosage: 20 MILLIGRAM
     Route: 040
     Dates: start: 20211127
  11. ATROPINE SULFATE [Concomitant]
     Active Substance: ATROPINE SULFATE
     Indication: Retroperitoneal cancer
     Dosage: 1 MILLIGRAM/ML
     Route: 030
     Dates: start: 20211127

REACTIONS (8)
  - Colon cancer metastatic [Unknown]
  - Therapy partial responder [Unknown]
  - Abdominal pain upper [Not Recovered/Not Resolved]
  - Oropharyngeal pain [Recovered/Resolved]
  - Gastrointestinal disorder [Unknown]
  - Diarrhoea [Recovering/Resolving]
  - Weight decreased [Not Recovered/Not Resolved]
  - Asthenia [Not Recovered/Not Resolved]

NARRATIVE: CASE EVENT DATE: 20220120
